FAERS Safety Report 11793233 (Version 1)
Quarter: 2015Q4

REPORT INFORMATION
  Report Type: Spontaneous
  Country: US (occurrence: US)
  Receive Date: 20151202
  Receipt Date: 20151202
  Transmission Date: 20160305
  Serious: No
  Sender: FDA-Public Use
  Company Number: US-PFIZER INC-2015403528

PATIENT
  Age: 57 Year
  Sex: Female
  Weight: 63 kg

DRUGS (2)
  1. ESTRING [Suspect]
     Active Substance: ESTRADIOL
     Indication: PREMATURE MENOPAUSE
  2. ESTRING [Suspect]
     Active Substance: ESTRADIOL
     Indication: PROPHYLAXIS
     Dosage: INSERTED VAGINALLY EVERY 3 MONTHS, ONE 2 MG VAGINAL RING

REACTIONS (3)
  - Vaginal odour [Recovered/Resolved]
  - Intentional product misuse [Unknown]
  - Product quality issue [Unknown]
